FAERS Safety Report 10437037 (Version 1)
Quarter: 2014Q3

REPORT INFORMATION
  Report Type: Spontaneous
  Country: US (occurrence: US)
  Receive Date: 20140908
  Receipt Date: 20140908
  Transmission Date: 20150326
  Serious: No
  Sender: FDA-Public Use
  Company Number: US-BRISTOL-MYERS SQUIBB COMPANY-19577642

PATIENT
  Age: 10 Year
  Sex: Male

DRUGS (4)
  1. ABILIFY [Suspect]
     Active Substance: ARIPIPRAZOLE
     Indication: AFFECTIVE DISORDER
  2. GUANFACINE. [Interacting]
     Active Substance: GUANFACINE
  3. DAYTRANA [Interacting]
     Active Substance: METHYLPHENIDATE
  4. LAMOTRIGINE. [Interacting]
     Active Substance: LAMOTRIGINE
     Indication: IRRITABILITY

REACTIONS (3)
  - Weight increased [Unknown]
  - Irritability [Unknown]
  - Drug interaction [Unknown]
